FAERS Safety Report 5594305-9 (Version None)
Quarter: 2008Q1

REPORT INFORMATION
  Report Type: 
  Country: None (occurrence: None)
  Receive Date: 20080117
  Receipt Date: 20080110
  Transmission Date: 20080703
  Serious: Yes (Hospitalization, Other)
  Sender: FDA-Public Use
  Company Number: FR-BAYER-200810528GPV

PATIENT
  Age: 16 Year
  Sex: Female
  Weight: 50 kg

DRUGS (2)
  1. MAGNEVIST [Suspect]
     Indication: ANGIOGRAM
     Dosage: TOTAL DAILY DOSE: 20 ML
     Route: 042
     Dates: start: 20071207, end: 20071207
  2. BETADINE [Concomitant]
     Indication: INFECTION PROPHYLAXIS
     Route: 003
     Dates: start: 20071207, end: 20071207

REACTIONS (7)
  - ALLERGIC RESPIRATORY SYMPTOM [None]
  - ANAPHYLACTIC SHOCK [None]
  - ERYTHEMA OF EYELID [None]
  - EYELID OEDEMA [None]
  - OXYGEN SATURATION DECREASED [None]
  - THROAT IRRITATION [None]
  - VOMITING [None]
